FAERS Safety Report 17642918 (Version 2)
Quarter: 2020Q2

REPORT INFORMATION
  Report Type: Spontaneous
  Country: IN (occurrence: IN)
  Receive Date: 20200408
  Receipt Date: 20200430
  Transmission Date: 20200713
  Serious: Yes (Life-Threatening, Hospitalization, Other)
  Sender: FDA-Public Use
  Company Number: IN-ACCORD-178400

PATIENT
  Age: 35 Year
  Sex: Female
  Weight: 44 kg

DRUGS (8)
  1. EPINEPHRINE. [Suspect]
     Active Substance: EPINEPHRINE
     Indication: PRODUCT USED FOR UNKNOWN INDICATION
     Dosage: 3 AMPULES OF ADRENALINE (1:2,00,000) ADDED WITH 30 ML OF LIGNOCAINE IN BOWL
  2. LIDOCAINE. [Concomitant]
     Active Substance: LIDOCAINE
     Indication: PREMEDICATION
     Dosage: 3 AMPULES OF ADRENALINE (1:2,00,000) ADDED WITH 30 ML OF LIGNOCAINE IN BOWL
  3. GLYCOPYRRONIUM [Concomitant]
     Active Substance: GLYCOPYRRONIUM
     Indication: PREMEDICATION
  4. DEXMEDETOMIDINE. [Suspect]
     Active Substance: DEXMEDETOMIDINE
     Indication: PRODUCT USED FOR UNKNOWN INDICATION
     Dosage: 16 MICROGRAM
     Route: 041
  5. PENTAZOCINE [Concomitant]
     Active Substance: PENTAZOCINE
     Indication: PREMEDICATION
  6. DEXMEDETOMIDINE. [Suspect]
     Active Substance: DEXMEDETOMIDINE
     Indication: PRODUCT USED FOR UNKNOWN INDICATION
     Route: 041
  7. MIDAZOLAM. [Concomitant]
     Active Substance: MIDAZOLAM
     Indication: PREMEDICATION
     Route: 042
  8. DEXMEDETOMIDINE. [Suspect]
     Active Substance: DEXMEDETOMIDINE
     Indication: PRODUCT USED FOR UNKNOWN INDICATION
     Route: 041

REACTIONS (9)
  - Incorrect dose administered [Unknown]
  - Myocardial ischaemia [Recovered/Resolved]
  - Hypertension [Recovered/Resolved]
  - Ventricular extrasystoles [Recovered/Resolved]
  - Hypoxia [Recovered/Resolved]
  - Metabolic acidosis [Recovered/Resolved]
  - Circulatory collapse [Recovered/Resolved]
  - Anuria [Recovered/Resolved]
  - Pulmonary oedema [Recovered/Resolved]
